FAERS Safety Report 8698070 (Version 2)
Quarter: 2013Q4

REPORT INFORMATION
  Report Type: Spontaneous
  Country: US (occurrence: US)
  Receive Date: 20120802
  Receipt Date: 20131107
  Transmission Date: 20140711
  Serious: Yes (Other)
  Sender: FDA-Public Use
  Company Number: US-009507513-1207USA009982

PATIENT
  Age: 33 Year
  Sex: Female

DRUGS (14)
  1. ZOCOR [Suspect]
     Route: 048
  2. COTAZYM CAPSULES [Suspect]
     Route: 048
  3. TACROLIMUS [Suspect]
     Dosage: 1.5-2 MG
  4. PREDNISOLONE [Suspect]
  5. SULFAMETHOXAZOLE (+) TRIMETHOPRIM [Suspect]
  6. COLISTIN [Suspect]
  7. SULFONMETHANE [Suspect]
  8. AZASITE [Suspect]
     Route: 047
  9. URSODIOL [Suspect]
  10. DARBEPOETIN ALFA [Suspect]
  11. ALLOPURINOL [Suspect]
  12. LANSOPRAZOLE [Suspect]
  13. FOLINIC ACID [Suspect]
  14. CALCIUM CARBONATE [Suspect]

REACTIONS (5)
  - Blood creatinine increased [Unknown]
  - Forced expiratory volume decreased [Unknown]
  - Palpitations [Unknown]
  - Maternal exposure during pregnancy [Unknown]
  - Hydronephrosis [Unknown]
